FAERS Safety Report 20761930 (Version 1)
Quarter: 2022Q2

REPORT INFORMATION
  Report Type: Spontaneous
  Country: HR (occurrence: HR)
  Receive Date: 20220428
  Receipt Date: 20220428
  Transmission Date: 20220721
  Serious: Yes (Hospitalization)
  Sender: FDA-Public Use
  Company Number: HR-STRIDES ARCOLAB LIMITED-2022SP004449

PATIENT
  Age: 38 Year
  Sex: Female

DRUGS (10)
  1. DIAZEPAM [Suspect]
     Active Substance: DIAZEPAM
     Indication: Product used for unknown indication
     Dosage: 2 MILLIGRAM,PER DAY, LATER, GRADUALLY AUGMENTED THE DOSE
     Route: 065
  2. DIAZEPAM [Suspect]
     Active Substance: DIAZEPAM
     Dosage: 10 MILLIGRAM, TID
     Route: 065
  3. DIAZEPAM [Suspect]
     Active Substance: DIAZEPAM
     Dosage: UNK,WERE TAPERED OFF AND LATER, WITHDRAWN
     Route: 065
  4. ZOLPIDEM [Suspect]
     Active Substance: ZOLPIDEM TARTRATE
     Indication: Sedative therapy
     Dosage: 300 MILLIGRAM
     Route: 065
  5. TRAMADOL [Suspect]
     Active Substance: TRAMADOL
     Indication: Sedative therapy
     Dosage: 1000 MILLIGRAM,PER DAY
     Route: 065
  6. TRAMADOL [Suspect]
     Active Substance: TRAMADOL
     Dosage: 100 MILLIGRAM, BID
     Route: 065
  7. TRAMADOL [Suspect]
     Active Substance: TRAMADOL
     Dosage: UNK,WERE TAPERED OFF AND LATER, WITHDRAWN
     Route: 065
  8. METHYLPHENIDATE [Suspect]
     Active Substance: METHYLPHENIDATE
     Indication: Product used for unknown indication
     Dosage: 18 MILLIGRAM,PER DAY
     Route: 065
  9. METHYLPHENIDATE [Suspect]
     Active Substance: METHYLPHENIDATE
     Dosage: 540 MILLIGRAM,PER DAY
     Route: 065
  10. LAMOTRIGINE [Concomitant]
     Active Substance: LAMOTRIGINE
     Indication: Seizure
     Dosage: 50 MILLIGRAM, BID
     Route: 065

REACTIONS (12)
  - Intentional product misuse [Unknown]
  - Overdose [Unknown]
  - Anxiety [Recovered/Resolved]
  - Withdrawal syndrome [Recovered/Resolved]
  - Drug abuse [Unknown]
  - Drug dependence [Unknown]
  - Drug dependence [Recovered/Resolved]
  - Fatigue [Recovered/Resolved]
  - Somnolence [Recovered/Resolved]
  - Memory impairment [Recovered/Resolved]
  - Paradoxical drug reaction [Unknown]
  - Euphoric mood [Unknown]
